FAERS Safety Report 25569676 (Version 1)
Quarter: 2025Q3

REPORT INFORMATION
  Report Type: Spontaneous
  Country: GB (occurrence: GB)
  Receive Date: 20250717
  Receipt Date: 20250717
  Transmission Date: 20251020
  Serious: Yes (Other)
  Sender: TEVA
  Company Number: None

PATIENT
  Age: 73 Year
  Sex: Female
  Weight: 85 kg

DRUGS (8)
  1. ATORVASTATIN [Suspect]
     Active Substance: ATORVASTATIN
     Indication: Blood cholesterol
     Dosage: TAKE ONE TABLET ONCE A DAY TO HELP LOWER CHOLES..., 20 MG DAILY
     Route: 065
     Dates: start: 20250116
  2. AMOXICILLIN [Concomitant]
     Active Substance: AMOXICILLIN
     Indication: Ill-defined disorder
     Dates: start: 20250527, end: 20250603
  3. LEVOTHYROXINE [Concomitant]
     Active Substance: LEVOTHYROXINE
     Indication: Ill-defined disorder
     Dosage: TAKE ONE DAILY
     Dates: start: 20250116
  4. DULOXETINE [Concomitant]
     Active Substance: DULOXETINE
     Indication: Ill-defined disorder
     Dosage: TAKE ONE CAPSULE ONCE A DAY, 1 DOSAGE FORMS DAILY, DURATION: 146 DAYS
     Dates: start: 20250207, end: 20250702
  5. EZETIMIBE [Concomitant]
     Active Substance: EZETIMIBE
     Indication: Ill-defined disorder
     Dosage: TAKE ONE TABLET ONCE A DAY TO HELP LOWER CHOLES..., 1 DOSAGE FORMS DAILY
     Dates: start: 20250702
  6. MEBEVERINE HYDROCHLORIDE [Concomitant]
     Active Substance: MEBEVERINE HYDROCHLORIDE
     Indication: Ill-defined disorder
     Dates: start: 20250311
  7. NITROFURANTOIN [Concomitant]
     Active Substance: NITROFURANTOIN
     Indication: Ill-defined disorder
     Dosage: TAKE ONE CAPSULE TWICE DAILY FOR 3 DAYS, TO TRE..., 2 DOSAGE FORMS DAILY, DURATION?4 DAYS
     Dates: start: 20250523, end: 20250526
  8. TIMOLOL MALEATE [Concomitant]
     Active Substance: TIMOLOL MALEATE
     Indication: Ill-defined disorder
     Dosage: ONE DROP ONCE A DAY IN BOTH EYES, 2 DROPS, PATIENT ROA: OPHTHALMIC
     Dates: start: 20250116

REACTIONS (2)
  - Myalgia [Recovered/Resolved]
  - Hypoaesthesia [Recovered/Resolved]
